FAERS Safety Report 5360345-8 (Version None)
Quarter: 2007Q2

REPORT INFORMATION
  Report Type: 
  Country: None (occurrence: None)
  Receive Date: 20070618
  Receipt Date: 20070606
  Transmission Date: 20071010
  Serious: Yes (Hospitalization, Disabling)
  Sender: FDA-Public Use
  Company Number: FR-AMGEN-UK228579

PATIENT
  Age: 35 Year
  Sex: Female

DRUGS (5)
  1. ARANESP [Suspect]
     Indication: DIALYSIS
     Route: 042
     Dates: start: 20050909
  2. MIMPARA [Concomitant]
  3. RENAGEL [Concomitant]
  4. ALFACALCIDOL [Concomitant]
  5. VENOFER [Concomitant]

REACTIONS (4)
  - AMNESIA [None]
  - CONVULSION [None]
  - FALL [None]
  - LOSS OF CONSCIOUSNESS [None]
